FAERS Safety Report 15677445 (Version 1)
Quarter: 2018Q4

REPORT INFORMATION
  Report Type: Spontaneous
  Country: US (occurrence: US)
  Receive Date: 20181130
  Receipt Date: 20181130
  Transmission Date: 20190205
  Serious: Yes (Other)
  Sender: FDA-Public Use
  Company Number: PHHY2018US165853

PATIENT
  Age: 55 Year
  Sex: Male

DRUGS (4)
  1. METHOTREXATE. [Suspect]
     Active Substance: METHOTREXATE
     Indication: BURKITT^S LYMPHOMA
     Dosage: 3.5 G/M2, UNK
     Route: 042
  2. CYTARABINE. [Suspect]
     Active Substance: CYTARABINE
     Indication: BURKITT^S LYMPHOMA
     Dosage: 2 G/M2, UNK
     Route: 065
  3. METHOTREXATE. [Suspect]
     Active Substance: METHOTREXATE
     Dosage: UNK, CYCLIC (EVERY 21 DAYS FOR FOUR CYCLES)
     Route: 037
  4. CYTARABINE. [Suspect]
     Active Substance: CYTARABINE
     Dosage: UNK, CYCLIC (EVERY 21 DAYS FOR FOUR CYCLES)
     Route: 065

REACTIONS (3)
  - Toxicity to various agents [Unknown]
  - Cytopenia [Unknown]
  - Renal impairment [Unknown]
